FAERS Safety Report 4614224-1 (Version None)
Quarter: 2005Q1

REPORT INFORMATION
  Report Type: 
  Country: None (occurrence: None)
  Receive Date: 20050315
  Receipt Date: 20050225
  Transmission Date: 20050727
  Serious: Yes (Hospitalization)
  Sender: FDA-Public Use
  Company Number: USA040875273

PATIENT
  Age: 7 Year
  Sex: Female
  Weight: 19 kg

DRUGS (2)
  1. STRATTERA [Suspect]
     Indication: ATTENTION DEFICIT/HYPERACTIVITY DISORDER
     Dosage: 25 MG/1 DAY
     Dates: start: 20040715
  2. IBUPROFEN [Concomitant]

REACTIONS (23)
  - ABDOMINAL MASS [None]
  - ABDOMINAL PAIN [None]
  - BAND NEUTROPHIL PERCENTAGE INCREASED [None]
  - BLOOD IMMUNOGLOBULIN G INCREASED [None]
  - COUGH [None]
  - DEHYDRATION [None]
  - DIARRHOEA [None]
  - EPSTEIN-BARR VIRUS INFECTION [None]
  - FLATULENCE [None]
  - GASTROENTERITIS [None]
  - HEPATITIS [None]
  - LETHARGY [None]
  - LYMPHOCYTE COUNT DECREASED [None]
  - PHARYNGOLARYNGEAL PAIN [None]
  - PLATELET COUNT INCREASED [None]
  - URINARY TRACT INFECTION [None]
  - URINE LEUKOCYTE ESTERASE POSITIVE [None]
  - URINE OUTPUT DECREASED [None]
  - VIRAL INFECTION [None]
  - VOMITING [None]
  - WHEEZING [None]
  - WHITE BLOOD CELL COUNT INCREASED [None]
  - WHITE BLOOD CELLS URINE POSITIVE [None]
